FAERS Safety Report 16995080 (Version 1)
Quarter: 2019Q4

REPORT INFORMATION
  Report Type: Spontaneous
  Country: CH (occurrence: CH)
  Receive Date: 20191105
  Receipt Date: 20191105
  Transmission Date: 20200122
  Serious: No
  Sender: FDA-Public Use
  Company Number: CH-B.BRAUN MEDICAL INC.-2076467

PATIENT
  Age: 60 Year
  Sex: Male
  Weight: 160 kg

DRUGS (6)
  1. PANTOZOL [Concomitant]
     Active Substance: PANTOPRAZOLE SODIUM
  2. TOREM [Concomitant]
     Active Substance: TORSEMIDE
  3. HEPARIN SODIUM IN DEXTROSE [Suspect]
     Active Substance: HEPARIN SODIUM
     Indication: ANTICOAGULANT THERAPY
     Route: 042
     Dates: start: 20190805, end: 20190810
  4. NOVALGIN [Concomitant]
  5. CRESTOR [Concomitant]
     Active Substance: ROSUVASTATIN CALCIUM
  6. ASPIRIN CARDIO (ACETYLSALICYLAT) [Concomitant]

REACTIONS (1)
  - Heparin-induced thrombocytopenia [None]
